FAERS Safety Report 7761080-9 (Version None)
Quarter: 2011Q3

REPORT INFORMATION
  Report Type: 
  Country: None (occurrence: None)
  Receive Date: 20110915
  Receipt Date: 20110830
  Transmission Date: 20111222
  Serious: Yes (Death)
  Sender: FDA-Public Use
  Company Number: FK201101861

PATIENT
  Age: 73 Year
  Sex: Male

DRUGS (4)
  1. DACARBAZINE [Suspect]
     Indication: HODGKIN'S DISEASE
     Dosage: 375 MG/M2, INTRAVENOUS
     Route: 042
  2. BLEOMYCIN SULFATE [Suspect]
     Indication: HODGKIN'S DISEASE
     Dosage: 15 MG, INTRAVENOUS
     Route: 042
  3. VINCRISTINE [Suspect]
     Indication: HODGKIN'S DISEASE
     Dosage: 1.4 MG/M2, INTRAVENOUS
     Route: 042
  4. PIRARUBICIN (PIRARUBICIN) (PIRARUBICIN) [Suspect]
     Indication: HODGKIN'S DISEASE
     Dosage: 25 MG/M2, INTRAVENOUS
     Route: 042

REACTIONS (1)
  - LUNG INFECTION [None]
